FAERS Safety Report 22145326 (Version 1)
Quarter: 2023Q1

REPORT INFORMATION
  Report Type: Spontaneous
  Country: HR (occurrence: HR)
  Receive Date: 20230328
  Receipt Date: 20230328
  Transmission Date: 20230417
  Serious: Yes (Other)
  Sender: FDA-Public Use
  Company Number: HR-Clinigen Group PLC/ Clinigen Healthcare Ltd-HR-CLGN-23-00120

PATIENT
  Age: 45 Year
  Sex: Male

DRUGS (9)
  1. FOSCARNET SODIUM [Suspect]
     Active Substance: FOSCARNET SODIUM
     Indication: Cytomegalovirus viraemia
  2. VALGANCICLOVIR [Concomitant]
     Active Substance: VALGANCICLOVIR
     Indication: Antiviral prophylaxis
     Route: 048
  3. VALGANCICLOVIR [Concomitant]
     Active Substance: VALGANCICLOVIR
     Indication: Cytomegalovirus infection
  4. IMMUNOGLOBULIN ANTICYTOMEGALOVIRUS [Concomitant]
     Indication: Cytomegalovirus infection
     Route: 042
  5. IMMUNOGLOBULIN ANTICYTOMEGALOVIRUS [Concomitant]
     Indication: Cytomegalovirus viraemia
  6. GANCICLOVIR [Concomitant]
     Active Substance: GANCICLOVIR
     Indication: Cytomegalovirus infection
     Route: 042
  7. GANCICLOVIR [Concomitant]
     Active Substance: GANCICLOVIR
     Route: 042
  8. LETERMOVIR [Concomitant]
     Active Substance: LETERMOVIR
     Indication: Cytomegalovirus viraemia
     Route: 048
  9. LETERMOVIR [Concomitant]
     Active Substance: LETERMOVIR
     Indication: Antiviral prophylaxis

REACTIONS (3)
  - Transplant rejection [Unknown]
  - Condition aggravated [Unknown]
  - Off label use [Unknown]
